FAERS Safety Report 8078465-6 (Version None)
Quarter: 2012Q1

REPORT INFORMATION
  Report Type: 
  Country: None (occurrence: None)
  Receive Date: 20120123
  Receipt Date: 20120118
  Transmission Date: 20120608
  Serious: Yes (Other)
  Sender: FDA-Public Use
  Company Number: GER/UKI/12/0022692

PATIENT
  Age: 72 Year
  Sex: Female
  Weight: 71 kg

DRUGS (9)
  1. OMEPRAZOLE [Concomitant]
  2. CLOPIDOGREL [Concomitant]
  3. FENOFIBRATE [Concomitant]
  4. PREMARIN [Concomitant]
  5. CANDESARTAN CILEXETIL [Concomitant]
  6. FEXOFENADINE HCL [Suspect]
     Indication: URTICARIA
     Dosage: 180 MG, ORAL
     Route: 048
     Dates: start: 20120103, end: 20120106
  7. QUININE SULFATE [Concomitant]
  8. AMITRIPTYLINE HCL [Concomitant]
  9. LEVOTHYROXINE SODIUM [Concomitant]

REACTIONS (3)
  - THROAT TIGHTNESS [None]
  - SWELLING FACE [None]
  - LIP SWELLING [None]
